FAERS Safety Report 10152520 (Version 1)
Quarter: 2014Q2

REPORT INFORMATION
  Report Type: Spontaneous
  Country: US (occurrence: US)
  Receive Date: 20140505
  Receipt Date: 20140505
  Transmission Date: 20141212
  Serious: Yes (Hospitalization)
  Sender: FDA-Public Use
  Company Number: US-SA-2014SA055412

PATIENT
  Age: 39 Year
  Sex: Male

DRUGS (4)
  1. LANTUS SOLOSTAR [Suspect]
     Indication: DIABETES MELLITUS
     Dosage: DOSE:60 UNIT(S)
     Route: 065
  2. SOLOSTAR [Concomitant]
  3. CRESTOR [Concomitant]
  4. NEXIUM [Concomitant]

REACTIONS (1)
  - Surgery [Unknown]
